FAERS Safety Report 11099679 (Version 21)
Quarter: 2016Q3

REPORT INFORMATION
  Report Type: Report from Study
  Country: MX (occurrence: MX)
  Receive Date: 20150508
  Receipt Date: 20160901
  Transmission Date: 20161109
  Serious: Yes (Hospitalization, Other)
  Sender: FDA-Public Use
  Company Number: MX-ROCHE-1407562

PATIENT
  Age: 66 Year
  Sex: Female
  Weight: 36 kg

DRUGS (9)
  1. AZULFIDINE [Concomitant]
     Active Substance: SULFASALAZINE
     Indication: RHEUMATOID ARTHRITIS
     Dosage: 6 TABLETS (2-2-2)
     Route: 048
     Dates: start: 2004, end: 2004
  2. MABTHERA [Suspect]
     Active Substance: RITUXIMAB
     Dosage: 500 MG AND BOOSTER DOSE OF 500 MG AFTER 15 DAYS
     Route: 042
     Dates: start: 201204, end: 20141121
  3. METHOTREXATE. [Concomitant]
     Active Substance: METHOTREXATE
     Indication: RHEUMATOID ARTHRITIS
     Dosage: 2 TABLETS (1-0-1)
     Route: 048
     Dates: start: 2004, end: 2011
  4. MABTHERA [Suspect]
     Active Substance: RITUXIMAB
     Dosage: 1000 MG AND BOOSTER DOSE OF 1000 MG AFTER 15 DAYS
     Route: 042
     Dates: start: 20141121
  5. ACETAMINOPHEN. [Concomitant]
     Active Substance: ACETAMINOPHEN
     Indication: PAIN
     Dosage: EVERY 8 HOURS FOR 5 DAYS
     Route: 048
  6. CARBAFEN [Concomitant]
     Indication: PAIN
     Dosage: EVERY 8 HOURS FOR 5 DAYS.
     Route: 048
  7. AZULFIDINE [Concomitant]
     Active Substance: SULFASALAZINE
     Dosage: 3 TABLETS (1-1-1)
     Route: 048
     Dates: start: 2004, end: 2011
  8. MABTHERA [Suspect]
     Active Substance: RITUXIMAB
     Indication: RHEUMATOID ARTHRITIS
     Dosage: 1000 MG AND BOOSTER DOSE OF 1000 MG AFTER 15 DAYS
     Route: 042
     Dates: start: 201104, end: 201204
  9. DICLOFENAC [Concomitant]
     Active Substance: DICLOFENAC
     Indication: PAIN
     Dosage: EVERY 8 HOURS FOR 5 DAYS
     Route: 048

REACTIONS (40)
  - Fatigue [Recovering/Resolving]
  - Nasopharyngitis [Recovered/Resolved]
  - Gluten sensitivity [Recovered/Resolved]
  - Peripheral swelling [Not Recovered/Not Resolved]
  - Vomiting [Recovering/Resolving]
  - Lymphoma [Not Recovered/Not Resolved]
  - Fall [Unknown]
  - Pulmonary mass [Recovered/Resolved]
  - Constipation [Recovering/Resolving]
  - Pain in extremity [Not Recovered/Not Resolved]
  - Myalgia [Not Recovered/Not Resolved]
  - Post procedural haematoma [Recovering/Resolving]
  - Chest pain [Not Recovered/Not Resolved]
  - Diarrhoea [Recovered/Resolved]
  - Gait disturbance [Not Recovered/Not Resolved]
  - Gastrointestinal sounds abnormal [Recovered/Resolved]
  - Arthralgia [Not Recovered/Not Resolved]
  - Tendon rupture [Not Recovered/Not Resolved]
  - Pain in extremity [Not Recovered/Not Resolved]
  - Weight decreased [Recovering/Resolving]
  - Urticaria [Recovered/Resolved]
  - Musculoskeletal pain [Not Recovered/Not Resolved]
  - Asthenia [Recovering/Resolving]
  - Throat irritation [Unknown]
  - Procedural pain [Not Recovered/Not Resolved]
  - Abdominal distension [Not Recovered/Not Resolved]
  - Nodule [Not Recovered/Not Resolved]
  - Abdominal pain [Not Recovered/Not Resolved]
  - Muscle spasms [Recovering/Resolving]
  - Flatulence [Recovered/Resolved]
  - Spinal pain [Not Recovered/Not Resolved]
  - Postoperative abscess [Recovering/Resolving]
  - Scoliosis [Not Recovered/Not Resolved]
  - Neuritis [Not Recovered/Not Resolved]
  - Gluten sensitivity [Not Recovered/Not Resolved]
  - Nervous system disorder [Recovering/Resolving]
  - Fall [Unknown]
  - Paraesthesia [Recovering/Resolving]
  - Pain [Recovered/Resolved]
  - Anxiety [Recovered/Resolved]

NARRATIVE: CASE EVENT DATE: 201208
